FAERS Safety Report 5241490-4 (Version None)
Quarter: 2007Q1

REPORT INFORMATION
  Report Type: 
  Country: None (occurrence: None)
  Receive Date: 20070220
  Receipt Date: 20070214
  Transmission Date: 20070707
  Serious: Yes (Other)
  Sender: FDA-Public Use
  Company Number: US-GLAXOSMITHKLINE-B0433745A

PATIENT

DRUGS (1)
  1. VENTOLIN [Suspect]
     Indication: ASTHMA
     Dosage: 90MCG THREE TIMES PER DAY
     Route: 055

REACTIONS (2)
  - ELECTROCARDIOGRAM QT PROLONGED [None]
  - ELECTROCARDIOGRAM T WAVE ABNORMAL [None]
